FAERS Safety Report 6700871-X (Version None)
Quarter: 2010Q2

REPORT INFORMATION
  Report Type: 
  Country: None (occurrence: None)
  Receive Date: 20100428
  Receipt Date: 20100420
  Transmission Date: 20101027
  Serious: Yes (Hospitalization)
  Sender: FDA-Public Use
  Company Number: ES-WYE-G06006810

PATIENT
  Age: 92 Year
  Sex: Male

DRUGS (6)
  1. VENLAFAXINE HCL [Suspect]
     Route: 048
     Dates: end: 20090706
  2. LEVOTHROID [Concomitant]
     Dosage: UNKNOWN
  3. PANTOPRAZOLE [Concomitant]
     Dosage: UNKNOWN
  4. DIGOXIN [Concomitant]
     Dosage: UNKNOWN
  5. ASPIRIN [Interacting]
     Indication: THROMBOSIS PROPHYLAXIS
     Route: 048
     Dates: start: 20090707, end: 20090811
  6. PLAVIX [Interacting]
     Indication: THROMBOSIS PROPHYLAXIS
     Route: 048
     Dates: start: 20061121

REACTIONS (3)
  - DRUG INTERACTION [None]
  - HAEMATOCRIT DECREASED [None]
  - LOWER GASTROINTESTINAL HAEMORRHAGE [None]
